FAERS Safety Report 21490492 (Version 1)
Quarter: 2022Q4

REPORT INFORMATION
  Report Type: Spontaneous
  Country: DE (occurrence: None)
  Receive Date: 20221021
  Receipt Date: 20221021
  Transmission Date: 20230113
  Serious: Yes (Death)
  Sender: FDA-Public Use
  Company Number: DE-ROCHE-300703

PATIENT
  Age: 28 Year
  Sex: Male
  Weight: 70 kg

DRUGS (5)
  1. MOCLOBEMIDE [Suspect]
     Active Substance: MOCLOBEMIDE
     Indication: Anxiety disorder
     Route: 048
  2. MIDAZOLAM HYDROCHLORIDE [Suspect]
     Active Substance: MIDAZOLAM HYDROCHLORIDE
     Indication: Anxiety disorder
     Route: 048
  3. ACETAMINOPHEN [Suspect]
     Active Substance: ACETAMINOPHEN
     Indication: Product used for unknown indication
     Route: 048
  4. FLUOXETINE [Concomitant]
     Active Substance: FLUOXETINE HYDROCHLORIDE
     Indication: Depression
     Route: 048
  5. PAROXETINE HYDROCHLORIDE [Concomitant]
     Active Substance: PAROXETINE HYDROCHLORIDE
     Route: 048

REACTIONS (10)
  - Toxicity to various agents [Fatal]
  - Serotonin syndrome [Fatal]
  - Acidosis [Fatal]
  - Dissociative disorder [Fatal]
  - Leukocytosis [Fatal]
  - Multiple organ dysfunction syndrome [Fatal]
  - Pyrexia [Fatal]
  - Rhabdomyolysis [Fatal]
  - Seizure [Fatal]
  - Supraventricular tachycardia [Fatal]

NARRATIVE: CASE EVENT DATE: 20010829
